FAERS Safety Report 18478578 (Version 2)
Quarter: 2020Q4

REPORT INFORMATION
  Report Type: Report from Study
  Country: KR (occurrence: KR)
  Receive Date: 20201109
  Receipt Date: 20201213
  Transmission Date: 20210114
  Serious: Yes (Hospitalization)
  Sender: FDA-Public Use
  Company Number: KR-CELLTRION INC.-2020KR024092

PATIENT

DRUGS (8)
  1. HERZUMA [Suspect]
     Active Substance: TRASTUZUMAB-PKRB
     Indication: SALIVARY GLAND CANCER
     Dosage: 539.2 MG
     Route: 042
     Dates: start: 20200304, end: 20200708
  2. HERZUMA [Suspect]
     Active Substance: TRASTUZUMAB-PKRB
     Dosage: 404.4 MG
     Route: 042
     Dates: start: 20200325, end: 20200729
  3. HERZUMA [Suspect]
     Active Substance: TRASTUZUMAB-PKRB
     Dosage: 404.4 MG
     Route: 042
     Dates: start: 20200819
  4. NANOXEL [Suspect]
     Active Substance: PACLITAXEL
     Indication: SALIVARY GLAND CANCER
     Dosage: UNK
     Route: 042
     Dates: start: 20200304, end: 20200708
  5. NANOXEL [Suspect]
     Active Substance: PACLITAXEL
     Dosage: 90 MG (DOSE REDUCTION)
     Route: 042
     Dates: start: 20200819
  6. HERZUMA [Suspect]
     Active Substance: TRASTUZUMAB-PKRB
     Dosage: 404.4 MG
     Route: 042
     Dates: start: 20201007
  7. NANOXEL [Suspect]
     Active Substance: PACLITAXEL
     Dosage: 108 MG (DOSE REDUCTION)
     Route: 042
     Dates: start: 20200325, end: 20200729
  8. NANOXEL [Suspect]
     Active Substance: PACLITAXEL
     Dosage: 135 MG
     Route: 042
     Dates: start: 20200305

REACTIONS (3)
  - Off label use [Unknown]
  - Pneumonia [Recovered/Resolved]
  - Metastases to central nervous system [Recovered/Resolved]

NARRATIVE: CASE EVENT DATE: 20200623
